FAERS Safety Report 14537442 (Version 5)
Quarter: 2018Q2

REPORT INFORMATION
  Report Type: Spontaneous
  Country: GR (occurrence: GR)
  Receive Date: 20180215
  Receipt Date: 20180523
  Transmission Date: 20180711
  Serious: Yes (Hospitalization, Other)
  Sender: FDA-Public Use
  Company Number: GR-BAUSCH-BL-2018-004047

PATIENT
  Age: 72 Year

DRUGS (5)
  1. DICLOFENAC [Suspect]
     Active Substance: DICLOFENAC
     Indication: CARDIAC FAILURE
     Route: 065
  2. AMILORIDE/FUROSEMIDE [Suspect]
     Active Substance: AMILORIDE\FUROSEMIDE
     Indication: CARDIAC FAILURE
     Dosage: 40 MG (FUROSEMIDE) PLUS 5 MG (AMILORIDE) BID
     Route: 065
  3. IRBESARTAN. [Suspect]
     Active Substance: IRBESARTAN
     Indication: CARDIAC FAILURE
     Route: 065
  4. CARVEDILOL. [Suspect]
     Active Substance: CARVEDILOL
     Indication: CARDIAC FAILURE
     Route: 065
  5. AMLODIPINE/OLMESARTAN MEDOXOMIL [Suspect]
     Active Substance: AMLODIPINE\OLMESARTAN
     Indication: CARDIAC FAILURE
     Dosage: 10 MG AMLODIPINE PLUS 20 MG OLMESARTAN
     Route: 065

REACTIONS (12)
  - Blood sodium increased [Unknown]
  - Hyperkalaemia [Recovered/Resolved]
  - Muscular weakness [Recovered/Resolved]
  - Hyponatraemia [Recovered/Resolved]
  - Electrocardiogram T wave abnormal [Unknown]
  - Blood creatinine increased [Unknown]
  - Renal impairment [Recovered/Resolved]
  - Product use issue [Recovered/Resolved]
  - Blood urea increased [Unknown]
  - Product use in unapproved indication [Recovered/Resolved]
  - Drug administration error [Unknown]
  - Orthostatic hypotension [Recovered/Resolved]
